FAERS Safety Report 8519977-8 (Version None)
Quarter: 2012Q2

REPORT INFORMATION
  Report Type: 
  Country: None (occurrence: None)
  Receive Date: 20120406
  Receipt Date: 20100729
  Transmission Date: 20120825
  Serious: Yes (Hospitalization, Other)
  Sender: FDA-Public Use
  Company Number: PHHY2010US50104

PATIENT
  Age: 65 Year
  Sex: Female

DRUGS (1)
  1. TASIGNA [Suspect]
     Indication: CHRONIC MYELOID LEUKAEMIA
     Dosage: 400, TWICE A DAY, ORAL
     Route: 048
     Dates: start: 20100701

REACTIONS (4)
  - PAIN [None]
  - ASTHENIA [None]
  - BONE MARROW FAILURE [None]
  - THROMBOCYTOPENIA [None]
